FAERS Safety Report 5951101-8 (Version None)
Quarter: 2009Q1

REPORT INFORMATION
  Report Type: 
  Country: None (occurrence: None)
  Receive Date: 20081112
  Receipt Date: 20081112
  Transmission Date: 20090719
  Serious: Yes (Hospitalization)
  Sender: FDA-Public Use
  Company Number: None

PATIENT
  Age: 80 Year
  Sex: Female
  Weight: 56.6996 kg

DRUGS (1)
  1. RISPERIDONE [Suspect]
     Indication: SCHIZOPHRENIA
     Dosage: 1 QID PO
     Route: 048
     Dates: start: 20081021, end: 20081110

REACTIONS (4)
  - CONDITION AGGRAVATED [None]
  - DISEASE PROGRESSION [None]
  - SCHIZOPHRENIFORM DISORDER [None]
  - THERAPEUTIC RESPONSE UNEXPECTED WITH DRUG SUBSTITUTION [None]
